FAERS Safety Report 6030613-5 (Version None)
Quarter: 2009Q1

REPORT INFORMATION
  Report Type: 
  Country: None (occurrence: None)
  Receive Date: 20090106
  Receipt Date: 20090106
  Transmission Date: 20090719
  Serious: Yes (Other)
  Sender: FDA-Public Use
  Company Number: None

PATIENT
  Age: 23 Year
  Sex: Female
  Weight: 52.1637 kg

DRUGS (1)
  1. NEXIUM [Suspect]
     Dosage: ONE 40MG CAPSUL DAILY PO
     Route: 048
     Dates: start: 20081212, end: 20081224

REACTIONS (6)
  - ANXIETY [None]
  - FEELING ABNORMAL [None]
  - NAUSEA [None]
  - PARANOIA [None]
  - RESTLESSNESS [None]
  - TREMOR [None]
